FAERS Safety Report 6609255-6 (Version None)
Quarter: 2010Q1

REPORT INFORMATION
  Report Type: 
  Country: None (occurrence: None)
  Receive Date: 20100223
  Receipt Date: 20100208
  Transmission Date: 20100710
  Serious: Yes (Death, Other)
  Sender: FDA-Public Use
  Company Number: CIP08002870

PATIENT
  Age: 79 Year
  Sex: Female
  Weight: 59.4 kg

DRUGS (5)
  1. ACTONEL [Suspect]
     Dosage: 35 MG ONCE WEEKLY, ORAL
     Route: 048
     Dates: start: 20030602, end: 20060101
  2. FOSAMAX [Suspect]
     Dosage: ORAL
     Route: 048
     Dates: end: 20040101
  3. SYNTHROID [Concomitant]
  4. PRENISONE (PREDNISONE) [Concomitant]
  5. ZYRTEC [Concomitant]

REACTIONS (14)
  - ENTEROBACTER INFECTION [None]
  - ENTEROCOCCAL INFECTION [None]
  - FISTULA DISCHARGE [None]
  - JOINT RANGE OF MOTION DECREASED [None]
  - OEDEMA MUCOSAL [None]
  - ORAL CAVITY FISTULA [None]
  - ORAL PAIN [None]
  - OSTEONECROSIS [None]
  - POST PROCEDURAL COMPLICATION [None]
  - SCAR [None]
  - SKIN LESION [None]
  - TOOTH ABSCESS [None]
  - TOOTHACHE [None]
  - WOUND INFECTION STAPHYLOCOCCAL [None]
